FAERS Safety Report 21329621 (Version 2)
Quarter: 2022Q4

REPORT INFORMATION
  Report Type: Spontaneous
  Country: US (occurrence: US)
  Receive Date: 20220913
  Receipt Date: 20221004
  Transmission Date: 20230113
  Serious: No
  Sender: FDA-Public Use
  Company Number: US-NOVARTISTESTPH-NVSC2022US206297

PATIENT
  Sex: Female

DRUGS (1)
  1. COMBIPATCH [Suspect]
     Active Substance: ESTRADIOL\NORETHINDRONE ACETATE
     Indication: Product used for unknown indication
     Dosage: BEGAN ON AN UNSPECIFIED DATE AROUND 8-9 MONTHS, 0.05/0.14 MG, EVERY 3-4 DAYS
     Route: 062
     Dates: start: 2022

REACTIONS (2)
  - Product adhesion issue [Not Recovered/Not Resolved]
  - Product storage error [Not Recovered/Not Resolved]
